FAERS Safety Report 18325995 (Version 2)
Quarter: 2020Q4

REPORT INFORMATION
  Report Type: Spontaneous
  Country: EG (occurrence: EG)
  Receive Date: 20200929
  Receipt Date: 20201020
  Transmission Date: 20210113
  Serious: Yes (Death, Hospitalization, Other)
  Sender: FDA-Public Use
  Company Number: EG-SA-2020SA265925

PATIENT

DRUGS (3)
  1. CEREZYME [Suspect]
     Active Substance: IMIGLUCERASE
     Indication: GAUCHER^S DISEASE TYPE III
     Dosage: 60 IU/KG, QOW
     Route: 041
     Dates: start: 19990727, end: 20200913
  2. VITAMIN D [COLECALCIFEROL] [Concomitant]
     Active Substance: CHOLECALCIFEROL
     Dosage: 400 U, QD
     Dates: start: 19970921, end: 20200914
  3. CALCIUM [Concomitant]
     Active Substance: CALCIUM
     Indication: PROPHYLAXIS
     Dosage: 600 MG, QD
     Dates: start: 20060103, end: 20200914

REACTIONS (2)
  - Wrong technique in product usage process [Unknown]
  - Status epilepticus [Fatal]

NARRATIVE: CASE EVENT DATE: 20200914
